FAERS Safety Report 25629659 (Version 2)
Quarter: 2025Q3

REPORT INFORMATION
  Report Type: Spontaneous
  Country: US (occurrence: US)
  Receive Date: 20250731
  Receipt Date: 20250930
  Transmission Date: 20251021
  Serious: No
  Sender: BOEHRINGER INGELHEIM
  Company Number: US-BoehringerIngelheim-2025-BI-086628

PATIENT
  Age: 75 Year
  Sex: Female

DRUGS (8)
  1. JARDIANCE [Suspect]
     Active Substance: EMPAGLIFLOZIN
     Indication: Product used for unknown indication
  2. MOUNJARO [Suspect]
     Active Substance: TIRZEPATIDE
     Indication: Type 2 diabetes mellitus
  3. MOUNJARO [Suspect]
     Active Substance: TIRZEPATIDE
     Indication: Renal impairment
  4. MOUNJARO [Suspect]
     Active Substance: TIRZEPATIDE
  5. MOUNJARO [Suspect]
     Active Substance: TIRZEPATIDE
  6. FARXIGA [Suspect]
     Active Substance: DAPAGLIFLOZIN PROPANEDIOL
     Indication: Product used for unknown indication
  7. KERENDIA (FINERENONE) [Concomitant]
     Indication: Product used for unknown indication
  8. FINERENONE [Concomitant]
     Active Substance: FINERENONE
     Indication: Product used for unknown indication

REACTIONS (7)
  - Hepatic enzyme increased [Unknown]
  - Cystitis [Unknown]
  - Urinary tract infection [Unknown]
  - Fungal infection [Unknown]
  - Hunger [Unknown]
  - Hypersensitivity [Unknown]
  - Discomfort [Unknown]

NARRATIVE: CASE EVENT DATE: 20250801
